FAERS Safety Report 5987281-8 (Version None)
Quarter: 2008Q4

REPORT INFORMATION
  Report Type: 
  Country: None (occurrence: None)
  Receive Date: 20081209
  Receipt Date: 20081204
  Transmission Date: 20090506
  Serious: Yes (Hospitalization)
  Sender: FDA-Public Use
  Company Number: US-ELI_LILLY_AND_COMPANY-US200812001384

PATIENT
  Sex: Female
  Weight: 81.633 kg

DRUGS (10)
  1. BYETTA [Suspect]
     Indication: TYPE 2 DIABETES MELLITUS
     Dosage: 5 UG, 2/D
     Route: 058
     Dates: start: 20060101, end: 20060101
  2. BYETTA [Suspect]
     Dosage: 10 UG, 2/D
     Route: 058
     Dates: start: 20000201, end: 20081001
  3. BYETTA [Suspect]
     Dosage: 10 UG, 2/D
     Route: 058
     Dates: start: 20081001
  4. CONTRAST MEDIA [Concomitant]
     Dosage: UNK, UNKNOWN
     Dates: start: 20080301, end: 20080301
  5. CONTRAST MEDIA [Concomitant]
     Dates: start: 20080101, end: 20080101
  6. CONTRAST MEDIA [Concomitant]
     Dates: start: 20081001, end: 20081001
  7. GLYBURIDE [Concomitant]
     Dosage: UNK, DAILY (1/D)
     Dates: end: 20081001
  8. GLYBURIDE [Concomitant]
     Dosage: UNK, DAILY (1/D)
     Dates: start: 20081001
  9. LASIX [Concomitant]
     Dosage: 40 MG, DAILY (1/D)
     Dates: end: 20081001
  10. LASIX [Concomitant]
     Dosage: 20 MG, DAILY (1/D)
     Dates: start: 20081001

REACTIONS (8)
  - ANEURYSM [None]
  - ASTHENIA [None]
  - BLOOD GLUCOSE INCREASED [None]
  - DYSURIA [None]
  - HYPERTENSION [None]
  - MALAISE [None]
  - RENAL FAILURE ACUTE [None]
  - WEIGHT DECREASED [None]
